FAERS Safety Report 16919020 (Version 1)
Quarter: 2019Q4

REPORT INFORMATION
  Report Type: Spontaneous
  Country: US (occurrence: US)
  Receive Date: 20191015
  Receipt Date: 20191015
  Transmission Date: 20200122
  Serious: No
  Sender: FDA-Public Use
  Company Number: US-PFIZER INC-2019441158

PATIENT
  Age: 58 Year
  Sex: Female
  Weight: 63.49 kg

DRUGS (3)
  1. FISH OIL [Concomitant]
     Active Substance: FISH OIL
     Dosage: UNK (100-150 MG CAPSULE)
  2. VITAMIN D3 [Concomitant]
     Active Substance: CHOLECALCIFEROL
     Dosage: 10000 IU, UNK (10000 UNIT CAPSULE)
  3. IBRANCE [Suspect]
     Active Substance: PALBOCICLIB
     Indication: BREAST CANCER FEMALE
     Dosage: 100 MG, CYCLIC (ONCE DAILY ON DAYS 1-21 FOLLOWED BY)
     Route: 048
     Dates: start: 20170601

REACTIONS (2)
  - Dermatitis acneiform [Unknown]
  - Constipation [Unknown]
